FAERS Safety Report 11151034 (Version 1)
Quarter: 2015Q2

REPORT INFORMATION
  Report Type: Spontaneous
  Country: US (occurrence: US)
  Receive Date: 20150601
  Receipt Date: 20150601
  Transmission Date: 20150821
  Serious: Yes (Death)
  Sender: FDA-Public Use
  Company Number: US-BAYER-2015-280009

PATIENT
  Age: 41 Year
  Sex: Female

DRUGS (2)
  1. YASMIN [Suspect]
     Active Substance: DROSPIRENONE\ETHINYL ESTRADIOL
     Dosage: UNK
     Dates: start: 2005, end: 20060323
  2. YAZ [Suspect]
     Active Substance: DROSPIRENONE\ETHINYL ESTRADIOL
     Dosage: UNK
     Dates: start: 2005, end: 20060323

REACTIONS (6)
  - Pain [Fatal]
  - Injury [None]
  - Pulmonary embolism [Fatal]
  - Deep vein thrombosis [Fatal]
  - Anhedonia [None]
  - Anxiety [None]

NARRATIVE: CASE EVENT DATE: 200603
